FAERS Safety Report 7099310 (Version 7)
Quarter: 2016Q4

REPORT INFORMATION
  Report Type: Spontaneous
  Country: JP (occurrence: JP)
  Receive Date: 20090828
  Receipt Date: 20161007
  Transmission Date: 20170207
  Serious: Yes (Hospitalization, Other)
  Sender: FDA-Public Use
  Company Number: JP-BRISTOL-MYERS SQUIBB COMPANY-14754816

PATIENT
  Age: 37 Year
  Sex: Female

DRUGS (17)
  1. LULLAN [Suspect]
     Active Substance: PEROSPIRONE HYDROCHLORIDE
     Indication: PERSONALITY DISORDER
  2. SEROQUEL [Suspect]
     Active Substance: QUETIAPINE FUMARATE
     Indication: PERSONALITY DISORDER
  3. ABILIFY [Suspect]
     Active Substance: ARIPIPRAZOLE
     Indication: DEPRESSIVE SYMPTOM
  4. ABILIFY [Suspect]
     Active Substance: ARIPIPRAZOLE
     Indication: SCHIZOPHRENIA
     Dosage: 21 MG, QD
     Route: 048
     Dates: start: 20060913
  5. LULLAN [Suspect]
     Active Substance: PEROSPIRONE HYDROCHLORIDE
     Indication: DEPRESSIVE SYMPTOM
  6. DEPROMEL [Suspect]
     Active Substance: FLUVOXAMINE
     Indication: DEPRESSIVE SYMPTOM
     Dosage: 25 MG, BID
     Route: 048
     Dates: start: 2006
  7. ABILIFY [Suspect]
     Active Substance: ARIPIPRAZOLE
     Indication: PERSONALITY DISORDER
  8. DEPROMEL [Suspect]
     Active Substance: FLUVOXAMINE
     Indication: AFFECT LABILITY
  9. LULLAN [Suspect]
     Active Substance: PEROSPIRONE HYDROCHLORIDE
     Indication: AFFECT LABILITY
     Dosage: 8 MG, QD
     Route: 048
     Dates: start: 2006
  10. MIRADOL [Suspect]
     Active Substance: SULPIRIDE
     Indication: AFFECT LABILITY
     Dosage: 50 MG, TID
     Route: 048
     Dates: start: 2006
  11. SEROQUEL [Suspect]
     Active Substance: QUETIAPINE FUMARATE
     Indication: AFFECT LABILITY
     Dosage: 25 MG, QD
     Route: 048
     Dates: start: 2006
  12. BENZALIN [Suspect]
     Active Substance: NITRAZEPAM
     Indication: INSOMNIA
     Dosage: 5 MG, QD
     Route: 048
     Dates: start: 2006
  13. DEPROMEL [Suspect]
     Active Substance: FLUVOXAMINE
     Indication: PERSONALITY DISORDER
  14. ABILIFY [Suspect]
     Active Substance: ARIPIPRAZOLE
     Indication: AFFECT LABILITY
  15. MIRADOL [Suspect]
     Active Substance: SULPIRIDE
     Indication: DEPRESSIVE SYMPTOM
  16. MIRADOL [Suspect]
     Active Substance: SULPIRIDE
     Indication: PERSONALITY DISORDER
  17. SEROQUEL [Suspect]
     Active Substance: QUETIAPINE FUMARATE
     Indication: DEPRESSIVE SYMPTOM

REACTIONS (2)
  - Abortion spontaneous [Recovered/Resolved]
  - Maternal exposure during pregnancy [Recovered/Resolved]

NARRATIVE: CASE EVENT DATE: 20090808
